FAERS Safety Report 10175657 (Version 1)
Quarter: 2014Q2

REPORT INFORMATION
  Report Type: Spontaneous
  Country: US (occurrence: US)
  Receive Date: 20140516
  Receipt Date: 20140516
  Transmission Date: 20141212
  Serious: No
  Sender: FDA-Public Use
  Company Number: US-009507513-1405USA007878

PATIENT
  Sex: Female

DRUGS (1)
  1. MIRALAX [Suspect]
     Indication: PRODUCT USED FOR UNKNOWN INDICATION
     Dosage: USING IT EVERYDAY
     Route: 048

REACTIONS (3)
  - Bladder disorder [Unknown]
  - Uterine disorder [Unknown]
  - Drug prescribing error [Unknown]
